FAERS Safety Report 8939863 (Version 1)
Quarter: 2012Q4

REPORT INFORMATION
  Report Type: 
  Country: FI (occurrence: FI)
  Receive Date: 20121203
  Receipt Date: 20121203
  Transmission Date: 20130627
  Serious: Yes (Hospitalization, Other)
  Sender: FDA-Public Use
  Company Number: FI-PFIZER INC-2012301974

PATIENT
  Age: 74 Year
  Sex: Male

DRUGS (3)
  1. CORDARONE [Suspect]
     Indication: ARRHYTHMIA
     Dosage: 200 mg, daily
     Route: 048
     Dates: start: 201111
  2. CORDARONE [Suspect]
     Dosage: UNK
     Route: 048
     Dates: end: 20121026
  3. TAVANIC [Suspect]
     Indication: PNEUMONIA
     Dosage: UNK
     Route: 048
     Dates: start: 20120921, end: 20121002

REACTIONS (2)
  - Pneumonia [Unknown]
  - Transaminases increased [Not Recovered/Not Resolved]
